FAERS Safety Report 6765674-9 (Version None)
Quarter: 2010Q2

REPORT INFORMATION
  Report Type: 
  Country: None (occurrence: None)
  Receive Date: 20100611
  Receipt Date: 20100604
  Transmission Date: 20101027
  Serious: Yes (Other)
  Sender: FDA-Public Use
  Company Number: IT-ELI_LILLY_AND_COMPANY-IT201006001295

PATIENT
  Sex: Male

DRUGS (1)
  1. HUMALOG [Suspect]
     Dosage: 36 U, DAILY (1/D)
     Route: 058
     Dates: start: 20090424, end: 20100424

REACTIONS (2)
  - APHASIA [None]
  - HYPOGLYCAEMIA [None]
